FAERS Safety Report 24025871 (Version 4)
Quarter: 2024Q3

REPORT INFORMATION
  Report Type: Report from Study
  Country: CN (occurrence: CN)
  Receive Date: 20240628
  Receipt Date: 20240710
  Transmission Date: 20241017
  Serious: No
  Sender: ROCHE
  Company Number: CN-ROCHE-3490496

PATIENT
  Age: 77 Year
  Sex: Female
  Weight: 66.0 kg

DRUGS (26)
  1. ALECTINIB [Suspect]
     Active Substance: ALECTINIB
     Indication: Lung cancer metastatic
     Route: 048
     Dates: start: 20200106
  2. TRIMETAZIDINE DIHYDROCHLORIDE [Concomitant]
     Active Substance: TRIMETAZIDINE DIHYDROCHLORIDE
     Indication: Atrial fibrillation
     Route: 048
     Dates: start: 20200408
  3. HERBALS\DIAMMONIUM GLYCYRRHIZINATE [Concomitant]
     Active Substance: HERBALS\DIAMMONIUM GLYCYRRHIZINATE
     Indication: Liver injury
     Route: 048
     Dates: start: 20211010
  4. SILIBININ [Concomitant]
     Active Substance: SILIBININ
     Indication: Liver injury
     Route: 048
     Dates: start: 20211202
  5. ASPIRIN [Concomitant]
     Active Substance: ASPIRIN
     Indication: Atrial fibrillation
     Route: 048
     Dates: start: 20200112, end: 20231121
  6. ASPIRIN [Concomitant]
     Active Substance: ASPIRIN
     Indication: Atrial fibrillation
  7. LEUCOGEN TABLETS [Concomitant]
     Indication: Thrombocytopenia
     Route: 048
     Dates: start: 20220919, end: 20220924
  8. ZOLEDRONIC ACID [Concomitant]
     Active Substance: ZOLEDRONIC ACID
     Indication: Metastases to bone
     Route: 050
     Dates: start: 20221114, end: 20221114
  9. SODIUM BICARBONATE [Concomitant]
     Active Substance: SODIUM BICARBONATE
     Indication: Hyperuricaemia
     Route: 048
     Dates: start: 20221112, end: 20221116
  10. GLYCERIN [Concomitant]
     Active Substance: GLYCERIN
     Indication: Constipation
     Route: 050
     Dates: start: 20221112, end: 20221112
  11. GLYCERIN [Concomitant]
     Active Substance: GLYCERIN
     Dates: start: 20230226, end: 20230226
  12. MANNATIDE [Concomitant]
     Indication: Metastases to bone
     Route: 050
     Dates: start: 20221112, end: 20221116
  13. ASPIRIN [Concomitant]
     Active Substance: ASPIRIN
     Indication: Atrial fibrillation
     Route: 048
     Dates: start: 20200112, end: 20231121
  14. LEUCOGEN TABLETS [Concomitant]
     Indication: Platelet count decreased
     Route: 048
     Dates: start: 20221112, end: 20221116
  15. LEUCOGEN TABLETS [Concomitant]
     Indication: White blood cell count decreased
     Route: 048
     Dates: start: 20230106
  16. MONTMORILLONITE [Concomitant]
     Active Substance: MONTMORILLONITE
     Indication: Diarrhoea
     Route: 048
     Dates: start: 20230104, end: 20230104
  17. LACTULOSE [Concomitant]
     Active Substance: LACTULOSE
     Indication: Constipation
     Route: 048
     Dates: start: 20230106, end: 202301
  18. LACTULOSE [Concomitant]
     Active Substance: LACTULOSE
     Route: 048
     Dates: start: 202306, end: 202306
  19. ZOLEDRONIC ACID [Concomitant]
     Active Substance: ZOLEDRONIC ACID
     Indication: Metastases to bone
     Route: 042
     Dates: start: 20230228
  20. HEPARIN SODIUM [Concomitant]
     Active Substance: HEPARIN SODIUM
     Indication: Venous thrombosis limb
     Route: 042
     Dates: start: 20230606, end: 20230611
  21. RIVAROXABAN [Concomitant]
     Active Substance: RIVAROXABAN
     Indication: Atrial fibrillation
     Route: 048
     Dates: start: 20230611, end: 202309
  22. METOPROLOL SUCCINATE [Concomitant]
     Active Substance: METOPROLOL SUCCINATE
     Indication: Cardiac failure chronic
     Route: 048
     Dates: start: 20230807
  23. FERROUS SUCCINATE [Concomitant]
     Active Substance: FERROUS SUCCINATE
     Indication: Anaemia
     Route: 048
     Dates: start: 20230807, end: 202308
  24. PAMIDRONATE DISODIUM AND GLUCOSE [Concomitant]
     Indication: Metastases to bone
     Route: 042
     Dates: start: 20230807, end: 20230808
  25. PLATELET BOOSTER CAPSULE (UNK INGREDIENTS) [Concomitant]
     Route: 048
     Dates: start: 20231119
  26. SACUBITRIL\VALSARTAN [Concomitant]
     Active Substance: SACUBITRIL\VALSARTAN
     Dates: start: 20230922

REACTIONS (1)
  - Pneumonia [Not Recovered/Not Resolved]

NARRATIVE: CASE EVENT DATE: 20220923
